FAERS Safety Report 23122569 (Version 2)
Quarter: 2023Q4

REPORT INFORMATION
  Report Type: Other
  Country: CA (occurrence: None)
  Receive Date: 20231030
  Receipt Date: 20231201
  Transmission Date: 20240109
  Serious: Yes (Hospitalization, Other)
  Sender: FDA-Public Use
  Company Number: CA-ROCHE-3405868

PATIENT
  Age: 53 Year
  Sex: Male

DRUGS (1)
  1. OCREVUS [Suspect]
     Active Substance: OCRELIZUMAB
     Indication: Relapsing-remitting multiple sclerosis
     Dosage: MORE DOSAGE INFORMATION IS 300 MG AT DAY 0 AND 14, THEN 600 MG EVERY 6 MONTH
     Route: 042
     Dates: start: 20200706

REACTIONS (8)
  - Craniofacial fracture [Unknown]
  - Cervical vertebral fracture [Recovering/Resolving]
  - Accident [Unknown]
  - Abscess [Recovering/Resolving]
  - Osteomyelitis [Recovering/Resolving]
  - Rib fracture [Recovering/Resolving]
  - Scapula fracture [Recovering/Resolving]
  - Limb injury [Unknown]

NARRATIVE: CASE EVENT DATE: 20230723
